FAERS Safety Report 4321204-2 (Version None)
Quarter: 2004Q1

REPORT INFORMATION
  Report Type: 
  Country: None (occurrence: None)
  Receive Date: 20040323
  Receipt Date: 20031113
  Transmission Date: 20041129
  Serious: Yes (Hospitalization)
  Sender: FDA-Public Use
  Company Number: PHNU2003DE04032

PATIENT
  Age: 37 Year
  Sex: Female

DRUGS (7)
  1. TRILEPTAL [Suspect]
     Indication: EPILEPSY
     Route: 048
  2. TRILEPTAL [Suspect]
     Dosage: 3.6 G/D
  3. TRILEPTAL [Suspect]
     Dosage: REDUCED TO 2.4G
     Route: 048
     Dates: start: 20000101
  4. KEPPRA [Suspect]
     Dates: start: 20030101
  5. KEPPRA [Suspect]
     Dosage: INCREASED TO NOW 1500 MG, BID
  6. TOPIRMATE [Suspect]
     Dates: start: 20000101
  7. CLONAZEPAM [Concomitant]

REACTIONS (54)
  - ACTIVATED PARTIAL THROMBOPLASTIN TIME PROLONGED [None]
  - ALANINE AMINOTRANSFERASE INCREASED [None]
  - AMMONIA INCREASED [None]
  - ANTITHROMBIN III DECREASED [None]
  - APHASIA [None]
  - APNOEA [None]
  - ASPARTATE AMINOTRANSFERASE INCREASED [None]
  - ASPIRATION [None]
  - BASE EXCESS NEGATIVE [None]
  - BLOOD ALBUMIN DECREASED [None]
  - BLOOD AMYLASE INCREASED [None]
  - BLOOD BICARBONATE DECREASED [None]
  - BLOOD CALCIUM DECREASED [None]
  - BLOOD CHOLINESTERASE DECREASED [None]
  - BLOOD CREATINE PHOSPHOKINASE INCREASED [None]
  - BLOOD GLUCOSE INCREASED [None]
  - BLOOD LACTATE DEHYDROGENASE INCREASED [None]
  - BLOOD MAGNESIUM DECREASED [None]
  - BLOOD PH DECREASED [None]
  - BLOOD PHOSPHORUS DECREASED [None]
  - C-REACTIVE PROTEIN INCREASED [None]
  - CYANOSIS [None]
  - ELECTROENCEPHALOGRAM ABNORMAL [None]
  - ELECTROLYTE IMBALANCE [None]
  - GAMMA-GLUTAMYLTRANSFERASE INCREASED [None]
  - GLUTAMATE DEHYDROGENASE INCREASED [None]
  - HAEMATOCRIT DECREASED [None]
  - HAEMOGLOBIN DECREASED [None]
  - HALLUCINATION, VISUAL [None]
  - HEMIPARESIS [None]
  - HEMIPLEGIA [None]
  - HEPATIC ENCEPHALOPATHY [None]
  - HEPATIC FAILURE [None]
  - HEPATOCELLULAR DAMAGE [None]
  - HEPATOTOXICITY [None]
  - HYPONATRAEMIA [None]
  - HYPOXIA [None]
  - ISCHAEMIC HEPATITIS [None]
  - LIPASE INCREASED [None]
  - MOBILITY DECREASED [None]
  - MOTOR DYSFUNCTION [None]
  - MOVEMENT DISORDER [None]
  - MYOCLONIC EPILEPSY [None]
  - PLATELET COUNT DECREASED [None]
  - PLATELET DISORDER [None]
  - PNEUMONIA [None]
  - PROTEIN TOTAL DECREASED [None]
  - PROTHROMBIN TIME PROLONGED [None]
  - PSYCHOTIC DISORDER [None]
  - RED BLOOD CELL COUNT DECREASED [None]
  - RESPIRATORY FAILURE [None]
  - STATUS EPILEPTICUS [None]
  - TONGUE BITING [None]
  - TONGUE HAEMORRHAGE [None]
